FAERS Safety Report 6915722-8 (Version None)
Quarter: 2010Q3

REPORT INFORMATION
  Report Type: 
  Country: None (occurrence: None)
  Receive Date: 20100810
  Receipt Date: 20100802
  Transmission Date: 20110219
  Serious: Yes (Other)
  Sender: FDA-Public Use
  Company Number: US-NOVOPROD-312461

PATIENT
  Sex: Male
  Weight: 79.365 kg

DRUGS (3)
  1. NOVOLOG [Suspect]
     Indication: TYPE 1 DIABETES MELLITUS
     Dosage: UNKNOWN
     Route: 058
  2. NOVOLOG [Suspect]
     Dosage: UNKNOWN
     Route: 058
  3. ANALGESICS [Concomitant]
     Indication: SPINAL DISORDER
     Dosage: UNKNOWN

REACTIONS (2)
  - BLOOD GLUCOSE INCREASED [None]
  - DEHYDRATION [None]
